FAERS Safety Report 19449144 (Version 2)
Quarter: 2021Q4

REPORT INFORMATION
  Report Type: Spontaneous
  Country: US (occurrence: US)
  Receive Date: 20210622
  Receipt Date: 20211011
  Transmission Date: 20220303
  Serious: No
  Sender: FDA-Public Use
  Company Number: US-PFIZER INC-2021606022

PATIENT
  Age: 11 Year
  Sex: Female

DRUGS (1)
  1. GENOTROPIN [Suspect]
     Active Substance: SOMATROPIN
     Dosage: 0.7 MG, DAILY

REACTIONS (5)
  - Floating-Harbor syndrome [Unknown]
  - Wrong device used [Unknown]
  - Device information output issue [Unknown]
  - Drug dose omission by device [Unknown]
  - Device breakage [Unknown]
